FAERS Safety Report 7729830-5 (Version None)
Quarter: 2011Q3

REPORT INFORMATION
  Report Type: 
  Country: None (occurrence: None)
  Receive Date: 20110906
  Receipt Date: 20110829
  Transmission Date: 20111222
  Serious: Yes (Other)
  Sender: FDA-Public Use
  Company Number: US-ROCHE-756319

PATIENT

DRUGS (4)
  1. CETUXIMAB [Suspect]
     Dosage: LOADING DOSE
     Route: 065
  2. OXALIPLATIN [Suspect]
     Route: 042
  3. CAPECITABINE [Suspect]
     Route: 048
  4. GEMCITABINE [Suspect]
     Route: 042

REACTIONS (5)
  - FATIGUE [None]
  - DERMATITIS ACNEIFORM [None]
  - PERIPHERAL SENSORY NEUROPATHY [None]
  - PARAESTHESIA [None]
  - GASTROINTESTINAL TOXICITY [None]
